FAERS Safety Report 20774963 (Version 3)
Quarter: 2022Q2

REPORT INFORMATION
  Report Type: Spontaneous
  Country: JP (occurrence: JP)
  Receive Date: 20220502
  Receipt Date: 20220527
  Transmission Date: 20220721
  Serious: Yes (Other)
  Sender: FDA-Public Use
  Company Number: JP-ELI_LILLY_AND_COMPANY-JP202205000132

PATIENT

DRUGS (6)
  1. NECITUMUMAB [Suspect]
     Active Substance: NECITUMUMAB
     Indication: Product used for unknown indication
     Dosage: 800 MG, UNKNOWN
     Route: 041
     Dates: start: 20211021, end: 20220510
  2. GEMCITABINE HYDROCHLORIDE [Concomitant]
     Active Substance: GEMCITABINE HYDROCHLORIDE
     Indication: Non-small cell lung cancer stage IV
     Dosage: UNK
     Dates: start: 20211021
  3. CISPLATIN [Concomitant]
     Active Substance: CISPLATIN
     Indication: Non-small cell lung cancer stage IV
     Dosage: UNK
     Dates: start: 20211021
  4. MYSER [DIFLUPREDNATE] [Concomitant]
     Indication: Dermatitis acneiform
     Dosage: UNK
     Route: 062
  5. HEPARINOID [Concomitant]
     Indication: Dermatitis acneiform
     Dosage: UNK
     Route: 062
  6. LOCOID [Concomitant]
     Active Substance: HYDROCORTISONE BUTYRATE
     Indication: Dermatitis acneiform

REACTIONS (6)
  - Dermatitis acneiform [Not Recovered/Not Resolved]
  - Malignant neoplasm progression [Unknown]
  - Hypomagnesaemia [Unknown]
  - Paronychia [Unknown]
  - Ingrowing nail [Unknown]
  - Skin fissures [Unknown]

NARRATIVE: CASE EVENT DATE: 20211027
